FAERS Safety Report 8820870 (Version 2)
Quarter: 2012Q4

REPORT INFORMATION
  Report Type: 
  Country: NL (occurrence: NL)
  Receive Date: 20121002
  Receipt Date: 20121129
  Transmission Date: 20130627
  Serious: Yes (Disabling)
  Sender: FDA-Public Use
  Company Number: NL-ROCHE-1138876

PATIENT
  Age: 45 Year
  Sex: Female
  Weight: 75 kg

DRUGS (7)
  1. XOLAIR [Suspect]
     Indication: ASTHMA
     Route: 065
     Dates: start: 20080821, end: 20120411
  2. XOLAIR [Suspect]
     Route: 065
     Dates: start: 201204, end: 201207
  3. XOLAIR [Suspect]
     Route: 065
     Dates: start: 20120801
  4. CALCIUM [Concomitant]
  5. AERIUS [Concomitant]
  6. BERODUAL [Concomitant]
  7. IPRAMOL [Concomitant]

REACTIONS (4)
  - Asthma [Not Recovered/Not Resolved]
  - Fatigue [Unknown]
  - Dyspnoea [Unknown]
  - Osteitis [Recovered/Resolved]
